FAERS Safety Report 23369344 (Version 1)
Quarter: 2024Q1

REPORT INFORMATION
  Report Type: Spontaneous
  Country: IR (occurrence: IR)
  Receive Date: 20240105
  Receipt Date: 20240105
  Transmission Date: 20240410
  Serious: Yes (Hospitalization, Other)
  Sender: FDA-Public Use
  Company Number: IR-Accord-396569

PATIENT
  Age: 60 Year
  Sex: Male

DRUGS (18)
  1. ETOPOSIDE [Suspect]
     Active Substance: ETOPOSIDE
     Indication: Haemophagocytic lymphohistiocytosis
     Dosage: EACH DOSE INCLUDES 80 MG ETOPOSIDE WITH NORMAL SALINE 500-1000 ML FOR AN HOUR
  2. DEXAMETHASONE [Concomitant]
     Active Substance: DEXAMETHASONE
     Indication: Haemophagocytic lymphohistiocytosis
  3. PYRIDOXINE [Concomitant]
     Active Substance: PYRIDOXINE
     Indication: Haemophagocytic lymphohistiocytosis
  4. ETHAMBUTOL /ISONIAZID/PYRAZINAMIDE/ [Concomitant]
     Indication: Disseminated tuberculosis
     Dosage: 150 MG/75 MG/400 MG/275 MG
     Route: 048
  5. LINEZOLID [Concomitant]
     Active Substance: LINEZOLID
     Indication: Salvage therapy
  6. AMIKACIN [Concomitant]
     Active Substance: AMIKACIN
     Indication: Salvage therapy
  7. AMOXICILLIN\CLAVULANIC ACID [Concomitant]
     Active Substance: AMOXICILLIN\CLAVULANIC ACID
     Indication: Salvage therapy
     Dosage: 125/500 MG
  8. MEROPENEM [Concomitant]
     Active Substance: MEROPENEM
     Indication: Salvage therapy
  9. LEVOFLOXACIN [Concomitant]
     Active Substance: LEVOFLOXACIN
     Indication: Salvage therapy
  10. BETAMETHASONE [Concomitant]
     Active Substance: BETAMETHASONE\BETAMETHASONE DIPROPIONATE
     Indication: Back pain
     Route: 030
  11. DICLOFENAC [Concomitant]
     Active Substance: DICLOFENAC
     Indication: Back pain
     Dosage: HIGH DOSES
  12. CELECOXIB [Concomitant]
     Active Substance: CELECOXIB
     Indication: Back pain
     Dosage: HIGH DOSES
  13. SALINE [Concomitant]
     Active Substance: SODIUM CHLORIDE
     Indication: Haemophagocytic lymphohistiocytosis
     Dosage: EACH DOSE INCLUDES 80 MG ETOPOSIDE WITH NORMAL SALINE 500-1000 ML FOR AN HOUR
  14. METRONIDAZOLE [Concomitant]
     Active Substance: METRONIDAZOLE
     Indication: Sepsis
     Dosage: TABLET OF METRONIDAZOLE 250 MG THREE TIMES A DAY
  15. SALINE [Concomitant]
     Active Substance: SODIUM CHLORIDE
     Indication: Haemophagocytic lymphohistiocytosis
     Dosage: EACH DOSE INCLUDES 80 MG ETOPOSIDE WITH NORMAL SALINE 500-1000 ML FOR AN HOUR
  16. BETAMETHASONE [Concomitant]
     Active Substance: BETAMETHASONE\BETAMETHASONE DIPROPIONATE
     Indication: Back pain
     Route: 030
  17. DICLOFENAC [Concomitant]
     Active Substance: DICLOFENAC
     Indication: Back pain
     Dosage: HIGH DOSES
  18. CELECOXIB [Concomitant]
     Active Substance: CELECOXIB
     Indication: Back pain
     Dosage: HIGH DOSES

REACTIONS (2)
  - Coagulopathy [Unknown]
  - Cytopenia [Unknown]
